FAERS Safety Report 19771637 (Version 2)
Quarter: 2021Q3

REPORT INFORMATION
  Report Type: Spontaneous
  Country: US (occurrence: US)
  Receive Date: 20210831
  Receipt Date: 20210831
  Transmission Date: 20211014
  Serious: No
  Sender: FDA-Public Use
  Company Number: US-ELI_LILLY_AND_COMPANY-US202108013204

PATIENT
  Sex: Female

DRUGS (3)
  1. HUMULIN 70/30 [Suspect]
     Active Substance: INSULIN HUMAN
     Dosage: 15 U, DAILY(AFTERNOON)
     Route: 065
  2. HUMULIN 70/30 [Suspect]
     Active Substance: INSULIN HUMAN
     Dosage: 22 U, DAILY(AFTERNOON)
     Route: 065
  3. HUMULIN 70/30 [Suspect]
     Active Substance: INSULIN HUMAN
     Indication: PRODUCT USED FOR UNKNOWN INDICATION
     Dosage: 25 U, EACH MORNING
     Route: 065

REACTIONS (1)
  - Incorrect dose administered [Unknown]
